FAERS Safety Report 9254114 (Version 1)
Quarter: 2013Q2

REPORT INFORMATION
  Report Type: Spontaneous
  Country: US (occurrence: None)
  Receive Date: 20130422
  Receipt Date: 20130422
  Transmission Date: 20140414
  Serious: Yes (Other)
  Sender: FDA-Public Use
  Company Number: ACO_35419_2013

PATIENT
  Age: 63 Year
  Sex: Female
  Weight: 66.2 kg

DRUGS (19)
  1. AMPYRA [Suspect]
     Indication: MULTIPLE SCLEROSIS
     Dosage: 10MG Q 12 HRS, ORAL
     Route: 048
  2. AMPYRA [Suspect]
     Indication: GAIT DISTURBANCE
     Dosage: 10MG Q 12 HRS, ORAL
     Route: 048
  3. DETROL [Concomitant]
  4. ASTEPRO (AZELASTINE HYDROCHLORIDE) [Concomitant]
  5. MELOXICAM (MELOXICAM) [Concomitant]
  6. NEURONTIN (GABAPENTIN) [Concomitant]
  7. ALLEGRA [Concomitant]
  8. COPAXONE (GLATIRAMER ACETATE) [Concomitant]
  9. INDOMETHACIN (INDOMETACIN) [Concomitant]
  10. BACLOFEN (BACLOFEN) [Concomitant]
  11. CRESTOR (ROSUVASTATIN CALCIUM) [Concomitant]
  12. TYLENOL (PARACETAMOL) [Concomitant]
  13. COLCHICINE (COLCHICINE) [Concomitant]
  14. IBANDRONATE (IBANDRONATE SODIUM) [Concomitant]
  15. ASA (ACETYLSALICYLIC ACID) [Concomitant]
  16. MULTIVITAMIN (VITAMINS NOS) [Concomitant]
  17. VITAMIN D (ERGOCALCIFEROL) [Concomitant]
  18. CALCITRIOL (CALCITRIOL) [Concomitant]
  19. LEVOCETIRIZINE DIHYDROCHLORIDE (LEVOCETIRIZINE DIHYDROCHLORIDE) [Concomitant]

REACTIONS (7)
  - Extranodal marginal zone B-cell lymphoma (MALT type) [None]
  - Hearing impaired [None]
  - Fall [None]
  - Gastrointestinal disorder [None]
  - Drug dose omission [None]
  - Meniscus injury [None]
  - Insomnia [None]
